FAERS Safety Report 5041454-X (Version None)
Quarter: 2006Q2

REPORT INFORMATION
  Report Type: 
  Country: None (occurrence: None)
  Receive Date: 20060627
  Receipt Date: 20060612
  Transmission Date: 20061013
  Serious: Yes (Other)
  Sender: FDA-Public Use
  Company Number: 2006S1005421

PATIENT
  Age: 37 Year
  Sex: Female
  Weight: 117.9352 kg

DRUGS (3)
  1. AMITRIPTYLINE HCL [Suspect]
     Indication: BIPOLAR I DISORDER
     Dosage: 200 MG, QD; ORAL
     Route: 048
     Dates: start: 20060528, end: 20060608
  2. CLONAZEPAM [Concomitant]
  3. CARBAMAZEPINE [Concomitant]

REACTIONS (5)
  - AGGRESSION [None]
  - DRUG INEFFECTIVE [None]
  - HOSTILITY [None]
  - IRRITABILITY [None]
  - SUICIDAL IDEATION [None]
